FAERS Safety Report 4332415-4 (Version None)
Quarter: 2004Q2

REPORT INFORMATION
  Report Type: 
  Country: None (occurrence: None)
  Receive Date: 20040401
  Receipt Date: 20040322
  Transmission Date: 20050107
  Serious: No
  Sender: FDA-Public Use
  Company Number: 03P-008-0240276-00

PATIENT
  Sex: Male

DRUGS (7)
  1. MERIDIA [Suspect]
     Indication: OBESITY
     Dosage: 10 MG, 1 IN 1 D, PER ORAL
     Route: 048
     Dates: start: 20031001
  2. ASPIRIN [Concomitant]
  3. PANTOPRAZOLE SODIUM [Concomitant]
  4. FUROSEMIDE [Concomitant]
  5. ZOCOR [Concomitant]
  6. LISINOPRIL [Concomitant]
  7. CEPHALEXIN [Concomitant]

REACTIONS (8)
  - ABDOMINAL PAIN UPPER [None]
  - BASAL CELL CARCINOMA [None]
  - BENIGN PROSTATIC HYPERPLASIA [None]
  - CHOLELITHIASIS [None]
  - CONSTIPATION [None]
  - HERNIA [None]
  - NAUSEA [None]
  - URINARY RETENTION [None]
